FAERS Safety Report 16834261 (Version 1)
Quarter: 2019Q3

REPORT INFORMATION
  Report Type: Spontaneous
  Country: US (occurrence: US)
  Receive Date: 20190920
  Receipt Date: 20190920
  Transmission Date: 20191005
  Serious: Yes (Hospitalization, Other)
  Sender: FDA-Public Use
  Company Number: US-PFIZER INC-2019401931

PATIENT
  Age: 69 Year
  Sex: Female
  Weight: 60.32 kg

DRUGS (4)
  1. SILDENAFIL CITRATE. [Suspect]
     Active Substance: SILDENAFIL CITRATE
     Dosage: 40 MG, THREE TIMES A DAY (EVERY 8 HOURS)
  2. SILDENAFIL CITRATE. [Suspect]
     Active Substance: SILDENAFIL CITRATE
     Dosage: 80 MG, THREE TIMES A DAY (EVERY 8 HOURS)
  3. LETAIRIS [Suspect]
     Active Substance: AMBRISENTAN
     Dosage: UNK
  4. REMODULIN [Suspect]
     Active Substance: TREPROSTINIL
     Indication: PULMONARY ARTERIAL HYPERTENSION
     Dosage: UNK [98 NG/KG/ M I N]
     Route: 042
     Dates: start: 20180426

REACTIONS (7)
  - Cardiac arrest [Unknown]
  - Loss of consciousness [Unknown]
  - Chest injury [Unknown]
  - Syncope [Unknown]
  - Off label use [Unknown]
  - Weight increased [Unknown]
  - Feeling abnormal [Unknown]

NARRATIVE: CASE EVENT DATE: 20190823
